FAERS Safety Report 25150062 (Version 1)
Quarter: 2025Q2

REPORT INFORMATION
  Report Type: Spontaneous
  Country: US (occurrence: US)
  Receive Date: 20250402
  Receipt Date: 20250402
  Transmission Date: 20250716
  Serious: No
  Sender: MISSION
  Company Number: US-Mission Pharmacal Company-2174077

PATIENT
  Age: 67 Year
  Sex: Female

DRUGS (15)
  1. THIOLA EC [Suspect]
     Active Substance: TIOPRONIN
     Indication: Calculus urinary
     Dates: start: 20230112
  2. FISH OIL [Concomitant]
     Active Substance: FISH OIL
  3. PROBIOTICS NOS [Concomitant]
     Active Substance: PROBIOTICS NOS
  4. UNSPECIFIED INGREDIENT [Concomitant]
     Active Substance: UNSPECIFIED INGREDIENT
  5. VITAMIN B12 [Concomitant]
     Active Substance: CYANOCOBALAMIN
  6. LEVOMEFOLIC ACID [Concomitant]
     Active Substance: LEVOMEFOLIC ACID
  7. JWH-018 [Concomitant]
     Active Substance: JWH-018
  8. UBIQUINOL [Concomitant]
     Active Substance: UBIQUINOL
  9. VITAMINS [Concomitant]
     Active Substance: VITAMINS
  10. ASPIRIN [Concomitant]
     Active Substance: ASPIRIN
  11. LIVALO [Concomitant]
     Active Substance: PITAVASTATIN CALCIUM
  12. MAGNESIUM GLUCONATE [Concomitant]
     Active Substance: MAGNESIUM GLUCONATE
  13. CYTOMEL [Concomitant]
     Active Substance: LIOTHYRONINE SODIUM
  14. SYNTHROID [Concomitant]
     Active Substance: LEVOTHYROXINE SODIUM
  15. LOSARTAN [Concomitant]
     Active Substance: LOSARTAN

REACTIONS (1)
  - Drug ineffective [Unknown]
